FAERS Safety Report 15672141 (Version 1)
Quarter: 2018Q4

REPORT INFORMATION
  Report Type: Report from Study
  Country: US (occurrence: US)
  Receive Date: 20181129
  Receipt Date: 20181129
  Transmission Date: 20190205
  Serious: Yes (Life-Threatening, Other)
  Sender: FDA-Public Use
  Company Number: US-TESARO, INC-US-2017TSO04234

PATIENT
  Age: 82 Year
  Sex: Female

DRUGS (5)
  1. ZEJULA [Suspect]
     Active Substance: NIRAPARIB
     Indication: OVARIAN CANCER
     Dosage: 100 MG, QD
     Route: 048
     Dates: start: 20170921
  2. ZEJULA [Suspect]
     Active Substance: NIRAPARIB
     Dosage: 200 MG QPM ALT 100 MG QPM
     Route: 048
  3. ZEJULA [Suspect]
     Active Substance: NIRAPARIB
     Dosage: 300 MG, UNK
     Route: 048
  4. ZEJULA [Suspect]
     Active Substance: NIRAPARIB
     Dosage: 100 MG, QD
     Route: 048
  5. ZEJULA [Suspect]
     Active Substance: NIRAPARIB
     Dosage: 200 MG, QD
     Route: 048

REACTIONS (22)
  - Haemoglobin decreased [Not Recovered/Not Resolved]
  - Contusion [Recovering/Resolving]
  - Peripheral swelling [Not Recovered/Not Resolved]
  - Thirst [Not Recovered/Not Resolved]
  - Intentional underdose [Not Recovered/Not Resolved]
  - Platelet count decreased [Recovering/Resolving]
  - Drug resistance [Not Recovered/Not Resolved]
  - Tumour marker increased [Not Recovered/Not Resolved]
  - Weight increased [Recovered/Resolved]
  - Oedema [Not Recovered/Not Resolved]
  - Rash [Not Recovered/Not Resolved]
  - Fatigue [Unknown]
  - Thyroid function test abnormal [Not Recovered/Not Resolved]
  - Unevaluable event [Not Recovered/Not Resolved]
  - Grief reaction [Unknown]
  - Malaise [Not Recovered/Not Resolved]
  - Blood potassium decreased [Unknown]
  - Carbohydrate antigen 125 increased [Recovering/Resolving]
  - Metastases to central nervous system [Recovering/Resolving]
  - Weight fluctuation [Not Recovered/Not Resolved]
  - Sleep disorder [Not Recovered/Not Resolved]
  - Asthenia [Not Recovered/Not Resolved]

NARRATIVE: CASE EVENT DATE: 20170921
